FAERS Safety Report 14184993 (Version 2)
Quarter: 2017Q4

REPORT INFORMATION
  Report Type: Spontaneous
  Country: BR (occurrence: BR)
  Receive Date: 20171114
  Receipt Date: 20171206
  Transmission Date: 20180321
  Serious: Yes (Other)
  Sender: FDA-Public Use
  Company Number: BR-TELIGENT, INC-IGIL20170485

PATIENT
  Age: 16 Year
  Sex: Male
  Weight: 52 kg

DRUGS (12)
  1. RANITIDINE HYDROCHLORIDE. [Suspect]
     Active Substance: RANITIDINE HYDROCHLORIDE
     Indication: NAUSEA
  2. RANITIDINE HYDROCHLORIDE. [Suspect]
     Active Substance: RANITIDINE HYDROCHLORIDE
     Indication: ABDOMINAL PAIN
  3. DRAMIN B-6 DL [Suspect]
     Active Substance: DEXTROSE\DIMENHYDRINATE\FRUCTOSE\PYRIDOXINE
     Indication: DIARRHOEA
  4. BUSCOPAN [Suspect]
     Active Substance: BUTYLSCOPOLAMINE BROMIDE
     Indication: NAUSEA
  5. BUSCOPAN [Suspect]
     Active Substance: BUTYLSCOPOLAMINE BROMIDE
     Indication: ABDOMINAL PAIN
  6. DRAMIN B-6 DL [Suspect]
     Active Substance: DEXTROSE\DIMENHYDRINATE\FRUCTOSE\PYRIDOXINE
     Indication: ABDOMINAL PAIN
  7. BUSCOPAN [Suspect]
     Active Substance: BUTYLSCOPOLAMINE BROMIDE
     Indication: VOMITING
     Dosage: 5 ML
     Route: 065
     Dates: start: 20170328
  8. DRAMIN B-6 DL [Suspect]
     Active Substance: DEXTROSE\DIMENHYDRINATE\FRUCTOSE\PYRIDOXINE
     Indication: VOMITING
     Route: 065
     Dates: start: 20170328
  9. BUSCOPAN [Suspect]
     Active Substance: BUTYLSCOPOLAMINE BROMIDE
     Indication: DIARRHOEA
  10. DRAMIN B-6 DL [Suspect]
     Active Substance: DEXTROSE\DIMENHYDRINATE\FRUCTOSE\PYRIDOXINE
     Indication: NAUSEA
  11. RANITIDINE HYDROCHLORIDE. [Suspect]
     Active Substance: RANITIDINE HYDROCHLORIDE
     Indication: VOMITING
     Dosage: 50 MG
     Route: 065
     Dates: start: 2017
  12. RANITIDINE HYDROCHLORIDE. [Suspect]
     Active Substance: RANITIDINE HYDROCHLORIDE
     Indication: DIARRHOEA

REACTIONS (9)
  - Abdominal pain [Recovered/Resolved]
  - Dyskinesia [Recovered/Resolved]
  - Vomiting [Recovered/Resolved]
  - Feeling cold [Recovered/Resolved]
  - Hypothermia [Recovered/Resolved]
  - Pallor [Recovered/Resolved]
  - Seizure like phenomena [Recovered/Resolved]
  - Diarrhoea [Recovered/Resolved]
  - Muscle spasms [Recovered/Resolved]

NARRATIVE: CASE EVENT DATE: 20170328
